FAERS Safety Report 6767000-8 (Version None)
Quarter: 2010Q2

REPORT INFORMATION
  Report Type: 
  Country: None (occurrence: None)
  Receive Date: 20100611
  Receipt Date: 20100531
  Transmission Date: 20101027
  Serious: Yes (Hospitalization)
  Sender: FDA-Public Use
  Company Number: FR-ELI_LILLY_AND_COMPANY-FR201002005002

PATIENT
  Age: 87 Year
  Sex: Male

DRUGS (3)
  1. FORTEO [Suspect]
     Indication: OSTEOPOROTIC FRACTURE
     Dosage: 20 UG, DAILY (1/D)
     Route: 058
     Dates: start: 20091201, end: 20100101
  2. KARDEGIC [Concomitant]
     Dosage: 160 MG, DAILY (1/D)
     Route: 048
  3. FLECAINIDE ACETATE [Concomitant]
     Dosage: 150 MG, DAILY (1/D)
     Route: 065

REACTIONS (3)
  - ANGIOPLASTY [None]
  - ARTERITIS [None]
  - FEMORAL ARTERIAL STENOSIS [None]
